FAERS Safety Report 5476696-2 (Version None)
Quarter: 2007Q4

REPORT INFORMATION
  Report Type: 
  Country: None (occurrence: None)
  Receive Date: 20071004
  Receipt Date: 20070824
  Transmission Date: 20080405
  Serious: Yes (Other)
  Sender: FDA-Public Use
  Company Number: PHFR2007GB02441

PATIENT

DRUGS (1)
  1. LIORESAL [Suspect]
     Route: 065

REACTIONS (3)
  - DYSPHAGIA [None]
  - GASTROSTOMY TUBE INSERTION [None]
  - HEAD INJURY [None]
